FAERS Safety Report 10765774 (Version 1)
Quarter: 2015Q1

REPORT INFORMATION
  Report Type: Spontaneous
  Country: US (occurrence: None)
  Receive Date: 20150204
  Receipt Date: 20150204
  Transmission Date: 20150721
  Serious: Yes (Life-Threatening)
  Sender: FDA-Public Use
  Company Number: None

PATIENT
  Age: 69 Year
  Sex: Female
  Weight: 71.67 kg

DRUGS (16)
  1. ASA [Concomitant]
     Active Substance: ASPIRIN
  2. ATENOLOL. [Concomitant]
     Active Substance: ATENOLOL
  3. BUPROPION [Concomitant]
     Active Substance: BUPROPION
  4. RANEXA [Suspect]
     Active Substance: RANOLAZINE
     Indication: VASODILATION PROCEDURE
     Dosage: 2 PILLS
     Route: 048
     Dates: start: 20141203, end: 20141210
  5. CLONAZEPAM. [Concomitant]
     Active Substance: CLONAZEPAM
  6. HYDROCHLOROTHIAZIDE. [Concomitant]
     Active Substance: HYDROCHLOROTHIAZIDE
  7. PANTOPRAZOLE [Concomitant]
     Active Substance: PANTOPRAZOLE SODIUM
  8. BACLOFEN. [Concomitant]
     Active Substance: BACLOFEN
  9. NITROGLYCERIN. [Concomitant]
     Active Substance: NITROGLYCERIN
  10. RANEXA [Suspect]
     Active Substance: RANOLAZINE
     Indication: ANGINA PECTORIS
     Dosage: 2 PILLS
     Route: 048
     Dates: start: 20141203, end: 20141210
  11. PRAVASTATIN [Concomitant]
     Active Substance: PRAVASTATIN\PRAVASTATIN SODIUM
  12. MESALAMINE (PENTASA) [Concomitant]
  13. POTASSIUM CHLORIDE. [Concomitant]
     Active Substance: POTASSIUM CHLORIDE
  14. ONDANSETRON [Concomitant]
     Active Substance: ONDANSETRON
  15. TRAMADOL [Concomitant]
     Active Substance: TRAMADOL
  16. ISOSORBIDE [Concomitant]
     Active Substance: ISOSORBIDE

REACTIONS (16)
  - Insomnia [None]
  - Headache [None]
  - Confusional state [None]
  - Syncope [None]
  - Vomiting [None]
  - Dyskinesia [None]
  - Nausea [None]
  - Palpitations [None]
  - Feeling abnormal [None]
  - Tremor [None]
  - Hyperhidrosis [None]
  - Fall [None]
  - Heart rate irregular [None]
  - Dizziness postural [None]
  - Blood pressure increased [None]
  - Tinnitus [None]

NARRATIVE: CASE EVENT DATE: 20141210
